FAERS Safety Report 8266943-6 (Version None)
Quarter: 2012Q2

REPORT INFORMATION
  Report Type: 
  Country: None (occurrence: None)
  Receive Date: 20120404
  Receipt Date: 20120404
  Transmission Date: 20120825
  Serious: Yes (Hospitalization)
  Sender: FDA-Public Use
  Company Number: None

PATIENT
  Age: 74 Year
  Sex: Male
  Weight: 91 kg

DRUGS (17)
  1. ADVAIR DISKUS 100/50 [Concomitant]
  2. ASPIRIN [Suspect]
     Indication: CORONARY ARTERY DISEASE
     Dosage: 81MG QDAY PO CHRONIC
     Route: 048
  3. ROPINOROLE [Concomitant]
  4. FERROUS SULFATE TAB [Concomitant]
  5. POTASSIUM CHLORIDE [Concomitant]
  6. COUMADIN [Suspect]
     Indication: ATRIAL FIBRILLATION
     Dosage: 5MG QPM PO  CHRONIC
     Route: 048
  7. GLIPIZIDE [Concomitant]
  8. TRAZODONE HCL [Concomitant]
  9. MIRALAX [Concomitant]
  10. DUONEBS [Concomitant]
  11. AMIODARONE HCL [Concomitant]
  12. LASIX [Concomitant]
  13. CALCIUM CARBONATE [Concomitant]
  14. LORTAB [Concomitant]
  15. SINGULAIR [Concomitant]
  16. FISH OIL [Concomitant]
  17. SPIRONOLACTONE [Concomitant]

REACTIONS (5)
  - DELIRIUM [None]
  - MENTAL DISORDER [None]
  - MUSCULAR WEAKNESS [None]
  - GAIT DISTURBANCE [None]
  - SUBDURAL HAEMATOMA [None]
